FAERS Safety Report 18716238 (Version 1)
Quarter: 2021Q1

REPORT INFORMATION
  Report Type: Spontaneous
  Country: US (occurrence: US)
  Receive Date: 20210107
  Receipt Date: 20210107
  Transmission Date: 20210419
  Serious: Yes (Life-Threatening, Disabling, Other)
  Sender: FDA-Public Use
  Company Number: None

PATIENT
  Age: 67 Year
  Sex: Female
  Weight: 41.85 kg

DRUGS (11)
  1. VITAMIN B [Concomitant]
     Active Substance: VITAMIN B
  2. VITAMIN C [Concomitant]
     Active Substance: ASCORBIC ACID
  3. VITAMIN D [Concomitant]
     Active Substance: VITAMIN D NOS
  4. BOTOX [Suspect]
     Active Substance: ONABOTULINUMTOXINA
     Indication: TORTICOLLIS
     Dosage: ?          OTHER STRENGTH:400;?
     Route: 008
     Dates: start: 20201015, end: 20201015
  5. AMITIZA [Concomitant]
     Active Substance: LUBIPROSTONE
  6. VITAMIN E [Concomitant]
     Active Substance: .ALPHA.-TOCOPHEROL
  7. DIAZEPAM. [Concomitant]
     Active Substance: DIAZEPAM
  8. CALCIUM [Concomitant]
     Active Substance: CALCIUM
  9. K2 [Concomitant]
     Active Substance: JWH-018
  10. OXYCODONE [Concomitant]
     Active Substance: OXYCODONE
  11. RECLAST [Concomitant]
     Active Substance: ZOLEDRONIC ACID

REACTIONS (19)
  - Heart rate increased [None]
  - Dysphagia [None]
  - Alopecia [None]
  - Pain [None]
  - Foot fracture [None]
  - Weight decreased [None]
  - Feeling abnormal [None]
  - Fall [None]
  - Urinary retention [None]
  - Musculoskeletal stiffness [None]
  - Autonomic dysreflexia [None]
  - Dyspnoea [None]
  - Cystitis [None]
  - Hypertension [None]
  - Eating disorder [None]
  - Constipation [None]
  - Insomnia [None]
  - Neck pain [None]
  - Ankle fracture [None]

NARRATIVE: CASE EVENT DATE: 20201015
